FAERS Safety Report 6260200-5 (Version None)
Quarter: 2009Q3

REPORT INFORMATION
  Report Type: 
  Country: None (occurrence: None)
  Receive Date: 20090708
  Receipt Date: 20090629
  Transmission Date: 20100115
  Serious: Yes (Life-Threatening)
  Sender: FDA-Public Use
  Company Number: B0579370A

PATIENT
  Age: 57 Year
  Sex: Female

DRUGS (8)
  1. VENTOLIN [Suspect]
     Indication: DRUG USE FOR UNKNOWN INDICATION
     Route: 055
     Dates: end: 20061224
  2. SERETIDE [Suspect]
     Indication: DRUG USE FOR UNKNOWN INDICATION
     Route: 055
  3. FLIXOTIDE [Suspect]
     Indication: DRUG USE FOR UNKNOWN INDICATION
     Route: 055
  4. SEREVENT [Suspect]
     Indication: DRUG USE FOR UNKNOWN INDICATION
     Route: 055
  5. SERETIDE [Concomitant]
     Route: 055
  6. SEREVENT [Concomitant]
     Route: 055
     Dates: end: 20070101
  7. FLIXOTIDE [Concomitant]
     Route: 055
     Dates: end: 20070101
  8. VENTOLIN [Concomitant]
     Route: 055
     Dates: start: 20061224

REACTIONS (4)
  - APPARENT LIFE THREATENING EVENT [None]
  - ASTHMA [None]
  - DRUG HYPERSENSITIVITY [None]
  - WHEEZING [None]
